FAERS Safety Report 9949137 (Version 1)
Quarter: 2014Q1

REPORT INFORMATION
  Report Type: Report from Study
  Country: US (occurrence: US)
  Receive Date: 20140304
  Receipt Date: 20140304
  Transmission Date: 20141002
  Serious: Yes (Hospitalization, Other)
  Sender: FDA-Public Use
  Company Number: US-ROCHE-1342130

PATIENT
  Age: 66 Year
  Sex: Male

DRUGS (25)
  1. LUCENTIS [Suspect]
     Indication: DIABETIC RETINAL OEDEMA
     Route: 050
     Dates: start: 20110125
  2. LUCENTIS [Suspect]
     Route: 050
  3. AVASTIN [Suspect]
     Indication: PRODUCT USED FOR UNKNOWN INDICATION
     Route: 065
     Dates: start: 20100824
  4. TROPICAMIDE [Concomitant]
     Route: 065
  5. PHENYLEPHRINE [Concomitant]
     Route: 065
  6. TRIESENCE [Concomitant]
     Dosage: OU
     Route: 050
     Dates: start: 20110322
  7. TRIESENCE [Concomitant]
     Route: 050
  8. NEVANAC [Concomitant]
     Dosage: 1 GTT; X 1 MONTH
     Route: 065
     Dates: start: 20121231, end: 20130217
  9. CIPROFLOXACIN HCL [Concomitant]
     Dosage: 1 GTT 3 DAYS PRE/1 DAY POST INTRAVITREAL INJECTION
     Route: 065
     Dates: start: 20100817
  10. PROPARACAINE [Concomitant]
     Indication: ANAESTHESIA
     Route: 061
  11. LIDOCAINE [Concomitant]
     Indication: ANAESTHESIA
     Route: 057
  12. COMBIGAN [Concomitant]
     Dosage: OS
     Route: 065
     Dates: start: 20121207
  13. COMBIGAN [Concomitant]
     Dosage: OS
     Route: 065
     Dates: start: 20130304
  14. HYDRALAZINE HCL [Concomitant]
     Dosage: WITH FOOD
     Route: 048
     Dates: start: 20121012
  15. DOXAZOSIN MESYLATE [Concomitant]
     Route: 048
     Dates: start: 20121012
  16. LIPITOR [Concomitant]
     Route: 048
     Dates: end: 20110629
  17. CITALOPRAM HBR [Concomitant]
  18. METOPROLOL TARTRATE [Concomitant]
  19. PREDNISOLONE ACETATE [Concomitant]
     Dosage: 1 GTT OD; X 1 MONTH
     Route: 065
     Dates: start: 20121207, end: 20130106
  20. LANTUS SOLOSTAR [Concomitant]
     Dosage: 100/ML (3)
     Route: 058
     Dates: start: 20110629
  21. FUROSEMIDE [Concomitant]
  22. LISINOPRIL [Concomitant]
  23. ASPIRIN [Concomitant]
  24. METFORMIN [Concomitant]
     Route: 065
  25. OMEPRAZOLE [Concomitant]

REACTIONS (27)
  - Cardiac failure congestive [Unknown]
  - Hypoglycaemia [Unknown]
  - Asthenia [Unknown]
  - Diarrhoea [Unknown]
  - Nephrotic syndrome [Unknown]
  - Dyspnoea [Unknown]
  - Pneumonia [Unknown]
  - Meibomian gland dysfunction [Unknown]
  - Ocular hyperaemia [Unknown]
  - Visual acuity reduced [Unknown]
  - Hip fracture [Unknown]
  - Off label use [Unknown]
  - Cataract [Unknown]
  - Lacrimation increased [Unknown]
  - Eye swelling [Unknown]
  - Eye pain [Unknown]
  - Glaucoma [Unknown]
  - Vitreous floaters [Unknown]
  - Vision blurred [Unknown]
  - Foreign body sensation in eyes [Unknown]
  - Skin ulcer [Unknown]
  - Ocular vascular disorder [Unknown]
  - Eye naevus [Unknown]
  - Abnormal sensation in eye [Unknown]
  - Conjunctival haemorrhage [Unknown]
  - Haemoglobin decreased [Unknown]
  - Disease progression [Unknown]
